FAERS Safety Report 22345144 (Version 1)
Quarter: 2023Q2

REPORT INFORMATION
  Report Type: Spontaneous
  Country: US (occurrence: US)
  Receive Date: 20230519
  Receipt Date: 20230519
  Transmission Date: 20230722
  Serious: Yes (Other)
  Sender: FDA-Public Use
  Company Number: US-TORRENT-00012661

PATIENT
  Age: 75 Year
  Sex: Male

DRUGS (8)
  1. LEVETIRACETAM [Suspect]
     Active Substance: LEVETIRACETAM
     Indication: Partial seizures
     Dosage: UNKNOWN
     Route: 065
  2. CLOBAZAM [Concomitant]
     Active Substance: CLOBAZAM
     Indication: Partial seizures
     Dosage: UNKNOWN
     Route: 065
  3. LACOSAMIDE [Concomitant]
     Active Substance: LACOSAMIDE
     Indication: Partial seizures
     Dosage: UNKNOWN
     Route: 065
  4. OXCARBAZEPINE [Concomitant]
     Active Substance: OXCARBAZEPINE
     Indication: Partial seizures
     Dosage: UNKNOWN
     Route: 065
  5. PHENOBARBITAL [Concomitant]
     Active Substance: PHENOBARBITAL
     Indication: Partial seizures
     Dosage: UNKNOWN
     Route: 065
  6. PHENYTOIN [Concomitant]
     Active Substance: PHENYTOIN
     Indication: Partial seizures
     Dosage: UNKNOWN
     Route: 065
  7. VALPROATE SODIUM [Concomitant]
     Active Substance: VALPROATE SODIUM
     Indication: Partial seizures
     Dosage: UNKNOWN
     Route: 065
  8. TOPIRAMATE [Concomitant]
     Active Substance: TOPIRAMATE
     Indication: Partial seizures
     Dosage: UNKNOWN
     Route: 065

REACTIONS (2)
  - Focal dyscognitive seizures [Recovered/Resolved]
  - New onset refractory status epilepticus [Recovered/Resolved]
